FAERS Safety Report 4877714-2 (Version None)
Quarter: 2006Q1

REPORT INFORMATION
  Report Type: 
  Country: None (occurrence: None)
  Receive Date: 20060109
  Receipt Date: 20051226
  Transmission Date: 20060701
  Serious: Yes (Other)
  Sender: FDA-Public Use
  Company Number: 2005172760

PATIENT
  Age: 57 Year
  Sex: Male
  Weight: 246.7568 kg

DRUGS (2)
  1. ROLAIDS MULTI-SYMPTOM (MAGNESIUM HYDROXIDE, CALCIUM CARBONATE, SIMETIC [Suspect]
     Indication: STOMACH DISCOMFORT
     Dosage: USED 100 TABLETS OVER A PERIOD OF 5 DAYS, ORAL
     Route: 048
     Dates: start: 20051221, end: 20051226
  2. ASPIRIN [Concomitant]

REACTIONS (2)
  - DIARRHOEA [None]
  - OVERDOSE [None]
